FAERS Safety Report 17499740 (Version 2)
Quarter: 2020Q1

REPORT INFORMATION
  Report Type: Spontaneous
  Country: NL (occurrence: NL)
  Receive Date: 20200304
  Receipt Date: 20200317
  Transmission Date: 20200409
  Serious: Yes (Other)
  Sender: FDA-Public Use
  Company Number: NL-TEVA-2020-NL-1193862

PATIENT
  Sex: Male
  Weight: 82.7 kg

DRUGS (7)
  1. SELOKEEN (METOPROLOL) [Concomitant]
     Dosage: TABLET WITH REGULATED RELEASE, 50 MG (MILLIGRAMS)
  2. ASCAL CARDIO (CARBASALAATCALCIUM) [Concomitant]
     Dosage: BAG (POWDER), 100 MG (MILLIGRAMS)
  3. PANTOPRAZOL [Concomitant]
     Active Substance: PANTOPRAZOLE SODIUM
  4. TETRACYCLINE [Suspect]
     Active Substance: TETRACYCLINE
     Indication: ACNE
     Dosage: 250 MG (MILLIGRAMS), 2 TIMES A DAY, 1
     Dates: start: 2013
  5. CANDESARTAN. [Concomitant]
     Active Substance: CANDESARTAN
     Dosage: 1DD 8,MG
  6. ESOMERAL [Concomitant]
     Dosage: 40MG
  7. CRESTOR (ROSUVASTATINE) [Concomitant]

REACTIONS (2)
  - Fistula [Not Recovered/Not Resolved]
  - Haemoptysis [Not Recovered/Not Resolved]
